FAERS Safety Report 18097180 (Version 2)
Quarter: 2020Q3

REPORT INFORMATION
  Report Type: Spontaneous
  Country: US (occurrence: US)
  Receive Date: 20200731
  Receipt Date: 20200907
  Transmission Date: 20201103
  Serious: No
  Sender: FDA-Public Use
  Company Number: US-PFIZER INC-2020287370

PATIENT
  Age: 76 Year
  Sex: Female

DRUGS (6)
  1. OMEPRAZOLE. [Concomitant]
     Active Substance: OMEPRAZOLE
     Indication: HIATUS HERNIA
     Dosage: 40 MG, 1X/DAY (AT NIGHT)
     Route: 048
     Dates: start: 2012
  2. PREMARIN [Suspect]
     Active Substance: ESTROGENS, CONJUGATED
     Indication: VAGINAL DISORDER
     Dosage: 0.5 G, WEEKLY(0.5G IN THE PACKAGE, SHE SUPPOSED TO USE UP TO THE FIRST LINE TWICE WEEKLY PER VAGINA)
     Route: 067
     Dates: start: 202007
  3. TRIAMTERENE/HYDROCHLOROTHIAZIDE [Concomitant]
     Active Substance: HYDROCHLOROTHIAZIDE\TRIAMTERENE
     Indication: FLUID RETENTION
     Dosage: 1 DF, 1X/DAY
     Route: 048
     Dates: start: 2005
  4. TRIAMTERENE/HYDROCHLOROTHIAZIDE [Concomitant]
     Active Substance: HYDROCHLOROTHIAZIDE\TRIAMTERENE
     Indication: BLOOD PRESSURE ABNORMAL
  5. IPRATROPIUM BROMIDE. [Concomitant]
     Active Substance: IPRATROPIUM BROMIDE
     Indication: BRONCHIECTASIS
     Dosage: UNK, AS NEEDED (0.5MG/3ML; ONE VIAL AS NEEDED)
     Dates: start: 2002
  6. VENTOLIN [Concomitant]
     Active Substance: ALBUTEROL SULFATE
     Indication: ASTHMA EXERCISE INDUCED
     Dosage: UNK, AS NEEDED (2 PUFFS DAILY AND AS NEEDED BY INHALER)
     Route: 055
     Dates: start: 2007

REACTIONS (4)
  - Product use in unapproved indication [Unknown]
  - Intentional product misuse [Not Recovered/Not Resolved]
  - Weight increased [Unknown]
  - Off label use [Unknown]

NARRATIVE: CASE EVENT DATE: 202007
